FAERS Safety Report 5779703-2 (Version None)
Quarter: 2008Q2

REPORT INFORMATION
  Report Type: 
  Country: None (occurrence: None)
  Receive Date: 20080617
  Receipt Date: 20080404
  Transmission Date: 20081010
  Serious: Yes (Hospitalization)
  Sender: FDA-Public Use
  Company Number: 78392

PATIENT
  Age: 23 Year
  Sex: Male

DRUGS (1)
  1. IBUROFEN [Suspect]
     Indication: INFLUENZA LIKE ILLNESS
     Dosage: X1/ORALLY
     Route: 048

REACTIONS (3)
  - DRUG RASH WITH EOSINOPHILIA AND SYSTEMIC SYMPTOMS [None]
  - RENAL FAILURE [None]
  - VIRAL INFECTION [None]
